FAERS Safety Report 5682457-1 (Version None)
Quarter: 2008Q1

REPORT INFORMATION
  Report Type: 
  Country: None (occurrence: None)
  Receive Date: 20080327
  Receipt Date: 20080315
  Transmission Date: 20080703
  Serious: Yes (Other)
  Sender: FDA-Public Use
  Company Number: US-AMGEN-QUU269961

PATIENT
  Sex: Female

DRUGS (2)
  1. ENBREL [Suspect]
     Indication: RHEUMATOID ARTHRITIS
     Route: 058
     Dates: start: 20040413
  2. METHOTREXATE [Concomitant]
     Route: 048
     Dates: start: 20040504

REACTIONS (3)
  - CORONARY ARTERY OCCLUSION [None]
  - MALIGNANT HYPERTENSION [None]
  - TRANSIENT ISCHAEMIC ATTACK [None]
